FAERS Safety Report 9248284 (Version 2)
Quarter: 2013Q2

REPORT INFORMATION
  Report Type: Spontaneous
  Country: US (occurrence: US)
  Receive Date: 20130423
  Receipt Date: 20130430
  Transmission Date: 20140414
  Serious: Yes (Other)
  Sender: FDA-Public Use
  Company Number: US-PFIZER INC-2013123818

PATIENT
  Age: 52 Year
  Sex: Female
  Weight: 58.1 kg

DRUGS (2)
  1. PREMPRO [Suspect]
     Indication: HOT FLUSH
     Dosage: 0.45/1.5 MG,1X/DAY
     Dates: start: 20130326, end: 20130416
  2. TRAMADOL [Concomitant]
     Indication: ARTHRALGIA
     Dosage: 50 MG, UNK (TWO OR THREE TIMES IN A DAY)

REACTIONS (2)
  - Breast mass [Not Recovered/Not Resolved]
  - Drug ineffective [Unknown]
